FAERS Safety Report 25489720 (Version 3)
Quarter: 2025Q3

REPORT INFORMATION
  Report Type: Spontaneous
  Country: EU (occurrence: EU)
  Receive Date: 20250627
  Receipt Date: 20250707
  Transmission Date: 20251020
  Serious: Yes (Death, Life-Threatening, Hospitalization, Other)
  Sender: SANDOZ
  Company Number: EU-002147023-NVSC2021FR263017

PATIENT
  Age: 74 Year
  Sex: Male

DRUGS (47)
  1. CARBOPLATIN [Suspect]
     Active Substance: CARBOPLATIN
     Indication: Diffuse large B-cell lymphoma stage IV
     Route: 065
  2. CYCLOSPORINE [Suspect]
     Active Substance: CYCLOSPORINE
     Indication: Product used for unknown indication
     Route: 065
  3. CYCLOPHOSPHAMIDE [Suspect]
     Active Substance: CYCLOPHOSPHAMIDE
     Indication: Diffuse large B-cell lymphoma stage IV
     Route: 065
  4. CYCLOPHOSPHAMIDE [Suspect]
     Active Substance: CYCLOPHOSPHAMIDE
     Indication: Chemotherapy
  5. CISPLATIN [Suspect]
     Active Substance: CISPLATIN
     Indication: Diffuse large B-cell lymphoma stage IV
     Route: 065
  6. CYTARABINE [Suspect]
     Active Substance: CYTARABINE
     Indication: Diffuse large B-cell lymphoma stage IV
     Route: 065
  7. DECADRON (DEXAMETHASONE SODIUM PHOSPHATE) [Suspect]
     Active Substance: DEXAMETHASONE SODIUM PHOSPHATE
     Indication: Diffuse large B-cell lymphoma stage IV
     Route: 065
  8. DOXORUBICIN HYDROCHLORIDE [Suspect]
     Active Substance: DOXORUBICIN HYDROCHLORIDE
     Indication: Diffuse large B-cell lymphoma stage IV
     Route: 065
  9. DOXORUBICIN HYDROCHLORIDE [Suspect]
     Active Substance: DOXORUBICIN HYDROCHLORIDE
     Route: 065
  10. ETOPOSIDE [Suspect]
     Active Substance: ETOPOSIDE
     Indication: Product used for unknown indication
     Route: 065
  11. FLUDARABINE [Suspect]
     Active Substance: FLUDARABINE PHOSPHATE
     Indication: Diffuse large B-cell lymphoma stage IV
     Route: 065
  12. GANCICLOVIR [Suspect]
     Active Substance: GANCICLOVIR
     Indication: Cytomegalovirus chorioretinitis
     Dosage: 2.5 MG/KG, BID
     Route: 065
  13. GANCICLOVIR [Suspect]
     Active Substance: GANCICLOVIR
     Indication: Cytomegalovirus infection reactivation
  14. IFOSFAMIDE [Suspect]
     Active Substance: IFOSFAMIDE
     Indication: Diffuse large B-cell lymphoma stage IV
     Route: 065
  15. METHOTREXATE [Suspect]
     Active Substance: METHOTREXATE
     Indication: Diffuse large B-cell lymphoma stage IV
     Route: 065
  16. PREDNISONE [Suspect]
     Active Substance: PREDNISONE
     Indication: Diffuse large B-cell lymphoma stage IV
     Route: 065
  17. RITUXIMAB [Suspect]
     Active Substance: RITUXIMAB
     Indication: Diffuse large B-cell lymphoma stage IV
     Route: 065
  18. VALGANCICLOVIR [Suspect]
     Active Substance: VALGANCICLOVIR
     Indication: Cytomegalovirus chorioretinitis
     Dosage: 450 MG, BID
     Route: 065
  19. VALGANCICLOVIR [Suspect]
     Active Substance: VALGANCICLOVIR
     Indication: Infection prophylaxis
     Dosage: UNKON DAY 10 AFTER CAR-T CELL INFUSION
     Route: 065
  20. VALGANCICLOVIR [Suspect]
     Active Substance: VALGANCICLOVIR
     Indication: Cytomegalovirus infection reactivation
  21. VINCRISTINE [Suspect]
     Active Substance: VINCRISTINE
     Indication: Diffuse large B-cell lymphoma stage IV
     Route: 065
  22. AXICABTAGENE CILOLEUCEL [Concomitant]
     Active Substance: AXICABTAGENE CILOLEUCEL
     Indication: Diffuse large B-cell lymphoma stage IV
     Route: 065
  23. FOSCARNET [Concomitant]
     Active Substance: FOSCARNET
     Dosage: 60.000MG TIW
     Route: 065
  24. FOSCARNET [Concomitant]
     Active Substance: FOSCARNET
     Dosage: 60.000MG TIW
     Route: 065
  25. FOSCARNET [Concomitant]
     Active Substance: FOSCARNET
     Dosage: 60.000MG TIW
     Route: 065
  26. FOSCARNET [Concomitant]
     Active Substance: FOSCARNET
     Dosage: 60.000MG TIW
     Route: 065
  27. FOSCARNET [Concomitant]
     Active Substance: FOSCARNET
     Dosage: 60.000MG TIW
     Route: 065
  28. FOSCARNET [Concomitant]
     Active Substance: FOSCARNET
     Route: 065
  29. FOSCARNET [Concomitant]
     Active Substance: FOSCARNET
     Indication: Cytomegalovirus chorioretinitis
     Dosage: 60 MG/KG, Q12H
     Route: 065
  30. FOSCARNET [Concomitant]
     Active Substance: FOSCARNET
     Dosage: 60.000MG/KG BID
     Route: 065
  31. FOSCARNET [Concomitant]
     Active Substance: FOSCARNET
     Dosage: 60.000MG/KG BID
     Route: 065
  32. FOSCARNET [Concomitant]
     Active Substance: FOSCARNET
     Dosage: 60.000MG/KG BID
     Route: 065
  33. FOSCARNET [Concomitant]
     Active Substance: FOSCARNET
     Dosage: 60.000MG/KG BID
     Route: 065
  34. FOSCARNET [Concomitant]
     Active Substance: FOSCARNET
     Dosage: 60.000MG/KG BID
     Route: 065
  35. FOSCARNET [Concomitant]
     Active Substance: FOSCARNET
     Dosage: SYSTEMIC FOSCARNET TREATMENT WAS 4 WEEKS AND LED TO RENAL FUNCTION DETERIORATION
     Route: 065
  36. FOSCARNET [Concomitant]
     Active Substance: FOSCARNET
     Route: 065
  37. FOSCARNET [Concomitant]
     Active Substance: FOSCARNET
     Route: 065
  38. FOSCARNET [Concomitant]
     Active Substance: FOSCARNET
     Route: 065
  39. FOSCARNET [Concomitant]
     Active Substance: FOSCARNET
     Route: 065
  40. FOSCARNET [Concomitant]
     Active Substance: FOSCARNET
     Route: 065
  41. FOSCARNET [Concomitant]
     Active Substance: FOSCARNET
     Route: 065
  42. FOSCARNET [Concomitant]
     Active Substance: FOSCARNET
     Route: 065
  43. FOSCARNET [Concomitant]
     Active Substance: FOSCARNET
     Route: 065
  44. FOSCARNET [Concomitant]
     Active Substance: FOSCARNET
     Route: 065
  45. FOSCARNET [Concomitant]
     Active Substance: FOSCARNET
     Route: 065
  46. FOSCARNET [Concomitant]
     Active Substance: FOSCARNET
     Route: 065
  47. SULFAMETHOXAZOLE\TRIMETHOPRIM [Concomitant]
     Active Substance: SULFAMETHOXAZOLE\TRIMETHOPRIM
     Indication: Diffuse large B-cell lymphoma stage IV
     Route: 065

REACTIONS (21)
  - Death [Fatal]
  - Cerebrovascular accident [Fatal]
  - Blindness [Fatal]
  - Memory impairment [Fatal]
  - Cytomegalovirus infection reactivation [Fatal]
  - Renal impairment [Fatal]
  - Drug ineffective [Fatal]
  - Hypogammaglobulinaemia [Unknown]
  - Cytomegalovirus chorioretinitis [Unknown]
  - Neurological decompensation [Unknown]
  - Neutropenia [Recovered/Resolved]
  - Myelosuppression [Unknown]
  - Drug ineffective [Unknown]
  - Encephalitis cytomegalovirus [Unknown]
  - Lymphopenia [Unknown]
  - Meningitis aseptic [Unknown]
  - Congenital aplasia [Unknown]
  - Pancytopenia [Not Recovered/Not Resolved]
  - Off label use [Unknown]
  - Off label use [Unknown]
  - Therapy non-responder [Unknown]
